FAERS Safety Report 6793088-4 (Version None)
Quarter: 2010Q2

REPORT INFORMATION
  Report Type: 
  Country: None (occurrence: None)
  Receive Date: 20100624
  Receipt Date: 20081113
  Transmission Date: 20101027
  Serious: No
  Sender: FDA-Public Use
  Company Number: US-PFIZER INC-2008096367

PATIENT
  Sex: Female

DRUGS (1)
  1. ALDACTAZIDE [Suspect]
     Indication: FLUID RETENTION

REACTIONS (3)
  - CONTRAST MEDIA ALLERGY [None]
  - OEDEMA [None]
  - PORPHYRIA [None]
